FAERS Safety Report 5854654-3 (Version None)
Quarter: 2008Q3

REPORT INFORMATION
  Report Type: 
  Country: None (occurrence: None)
  Receive Date: 20080822
  Receipt Date: 20080811
  Transmission Date: 20090109
  Serious: Yes (Death)
  Sender: FDA-Public Use
  Company Number: CH-PFIZER INC-2008067047

PATIENT
  Sex: Male

DRUGS (15)
  1. FLUCONAZOLE [Suspect]
     Dosage: DAILY DOSE:150MG
  2. ITRACONAZOLE [Concomitant]
  3. PREDNISON [Concomitant]
  4. IMUREK [Concomitant]
  5. PROGRAF [Concomitant]
  6. RENAGEL [Concomitant]
  7. SODIUM POLYSTYRENE SULFONATE [Concomitant]
  8. ALL OTHER THERAPEUTIC PRODUCTS [Concomitant]
  9. ROCALTROL [Concomitant]
  10. VI-DE 3 [Concomitant]
  11. SPORANOX [Concomitant]
  12. DURAGESIC-100 [Concomitant]
  13. FLUVOXAMINE MALEATE [Concomitant]
  14. TEMESTA [Concomitant]
  15. NEXIUM [Concomitant]

REACTIONS (1)
  - SEPSIS [None]
